FAERS Safety Report 6596907-X (Version None)
Quarter: 2010Q1

REPORT INFORMATION
  Report Type: 
  Country: None (occurrence: None)
  Receive Date: 20100223
  Receipt Date: 20100212
  Transmission Date: 20100710
  Serious: Yes (Hospitalization)
  Sender: FDA-Public Use
  Company Number: PL-JNJFOC-20100207523

PATIENT

DRUGS (16)
  1. GOLIMUMAB [Suspect]
     Indication: RHEUMATOID ARTHRITIS
     Route: 058
  2. GOLIMUMAB [Suspect]
     Route: 058
  3. PLACEBO [Suspect]
     Indication: RHEUMATOID ARTHRITIS
     Route: 058
  4. METHOTREXATE [Suspect]
     Indication: RHEUMATOID ARTHRITIS
     Route: 048
  5. METHOTREXATE [Suspect]
     Route: 048
  6. METHOTREXATE [Suspect]
     Route: 048
  7. METHOTREXATE [Suspect]
     Route: 048
  8. METHOTREXATE [Suspect]
     Route: 048
  9. METHOTREXATE [Suspect]
     Route: 048
  10. METHOTREXATE [Suspect]
     Route: 048
  11. METHOTREXATE [Concomitant]
     Route: 048
  12. BISOPROLOL [Concomitant]
     Route: 048
  13. PRAZOLE [Concomitant]
     Route: 048
  14. ACIDUM FOLICUM [Concomitant]
     Route: 048
  15. DICLOFENAC [Concomitant]
     Route: 048
  16. ENCORTON [Concomitant]
     Route: 048

REACTIONS (1)
  - PNEUMONIA [None]
